FAERS Safety Report 17367804 (Version 1)
Quarter: 2020Q1

REPORT INFORMATION
  Report Type: Spontaneous
  Country: US (occurrence: US)
  Receive Date: 20200201
  Receipt Date: 20200201
  Transmission Date: 20200409
  Serious: Yes (Disabling)
  Sender: FDA-Public Use
  Company Number: None

PATIENT
  Sex: Female
  Weight: 63.5 kg

DRUGS (1)
  1. PARAGARD T 380A [Suspect]
     Active Substance: COPPER

REACTIONS (21)
  - Dyspepsia [None]
  - Dysmenorrhoea [None]
  - Menstruation delayed [None]
  - Loss of personal independence in daily activities [None]
  - Poor quality sleep [None]
  - Depression [None]
  - Alopecia [None]
  - Panic attack [None]
  - Abdominal pain [None]
  - Pain [None]
  - Menstruation irregular [None]
  - Abdominal distension [None]
  - Nausea [None]
  - Hypomenorrhoea [None]
  - Arthralgia [None]
  - Feeling abnormal [None]
  - Back pain [None]
  - Fatigue [None]
  - Anxiety [None]
  - Weight increased [None]
  - Abnormal dreams [None]

NARRATIVE: CASE EVENT DATE: 20190801
